FAERS Safety Report 4401436-5 (Version None)
Quarter: 2004Q3

REPORT INFORMATION
  Report Type: 
  Country: None (occurrence: None)
  Receive Date: 20040907
  Receipt Date: 20040504
  Transmission Date: 20050211
  Serious: No
  Sender: FDA-Public Use
  Company Number: US-BRISTOL-MYERS SQUIBB COMPANY-12579637

PATIENT
  Age: 67 Year
  Sex: Male
  Weight: 58 kg

DRUGS (4)
  1. COUMADIN [Suspect]
     Indication: THROMBOSIS PROPHYLAXIS
     Dosage: DOSE VALUE:   1 MG 6 DAYS A WEEK, ALTERNATING WITH 2 MG FOR ONE DAY.
     Route: 048
  2. COMBIVENT [Concomitant]
  3. ACCUPRIL [Concomitant]
  4. ACCOLATE [Concomitant]

REACTIONS (1)
  - RASH [None]
